FAERS Safety Report 15222410 (Version 1)
Quarter: 2018Q3

REPORT INFORMATION
  Report Type: Spontaneous
  Country: US (occurrence: US)
  Receive Date: 20180705
  Receipt Date: 20180705
  Transmission Date: 20181010
  Serious: Yes (Hospitalization)
  Sender: FDA-Public Use
  Company Number: None

PATIENT
  Age: 59 Year
  Sex: Male
  Weight: 81 kg

DRUGS (9)
  1. NICODERM CQ [Concomitant]
     Active Substance: NICOTINE
     Dates: start: 20180630, end: 20180703
  2. BACTRIM DS (SULFAMETHAXAZOLE/TRIMETHOPRIN) [Suspect]
     Active Substance: SULFAMETHOXAZOLE\TRIMETHOPRIM
     Indication: URINARY TRACT INFECTION
     Route: 048
     Dates: start: 20180630, end: 20180702
  3. LORATADINE. [Concomitant]
     Active Substance: LORATADINE
     Dates: start: 20180630, end: 20180703
  4. CELEBREX [Concomitant]
     Active Substance: CELECOXIB
     Dates: start: 20180630, end: 20180703
  5. DEPAKOTE [Concomitant]
     Active Substance: DIVALPROEX SODIUM
     Dates: start: 20180630, end: 20180703
  6. SYNTHROID [Concomitant]
     Active Substance: LEVOTHYROXINE SODIUM
     Dates: start: 20180630, end: 20180703
  7. TRAZODONE [Concomitant]
     Active Substance: TRAZODONE HYDROCHLORIDE
     Dates: start: 20180630, end: 20180703
  8. SEROQUEL [Concomitant]
     Active Substance: QUETIAPINE FUMARATE
     Dates: start: 20180630, end: 20180703
  9. ATIVAN [Concomitant]
     Active Substance: LORAZEPAM
     Dates: start: 20180630, end: 20180703

REACTIONS (7)
  - Rash [None]
  - Pain [None]
  - Blood pressure fluctuation [None]
  - Blister [None]
  - Skin exfoliation [None]
  - Suicidal ideation [None]
  - Tachycardia [None]

NARRATIVE: CASE EVENT DATE: 20180703
